FAERS Safety Report 5718892-2 (Version None)
Quarter: 2008Q2

REPORT INFORMATION
  Report Type: 
  Country: None (occurrence: None)
  Receive Date: 20080425
  Receipt Date: 20080416
  Transmission Date: 20081010
  Serious: Yes (Hospitalization, Other)
  Sender: FDA-Public Use
  Company Number: US-MERCK-0706USA00988

PATIENT
  Age: 78 Year
  Sex: Female
  Weight: 50 kg

DRUGS (9)
  1. FOSAMAX [Suspect]
     Indication: OSTEOPOROSIS
     Route: 048
     Dates: start: 20010910, end: 20060517
  2. CALCIUM (UNSPECIFIED) AND VITAMIN D (UNSPECIFIED) [Concomitant]
     Route: 048
  3. ARTIFICIAL TEARS [Concomitant]
     Indication: DRY EYE
     Route: 047
  4. MINERALS (UNSPECIFIED) AND VITAMINS (UNSPECIFIED) [Concomitant]
     Route: 048
  5. DOCUSATE SODIUM [Concomitant]
     Indication: CONSTIPATION
     Route: 065
  6. ASPIRIN [Concomitant]
     Indication: PROPHYLAXIS
     Route: 048
  7. ATENOLOL [Concomitant]
     Indication: BLOOD PRESSURE ABNORMAL
     Route: 048
  8. NITROGLYCERIN [Concomitant]
     Indication: CHEST PAIN
     Route: 060
  9. FLUNISOLIDE [Concomitant]
     Indication: NASAL CONGESTION
     Route: 065

REACTIONS (23)
  - ALOPECIA [None]
  - ANXIETY [None]
  - ASTIGMATISM [None]
  - BACK PAIN [None]
  - BLOOD CHOLESTEROL INCREASED [None]
  - CHEST PAIN [None]
  - CONSTIPATION [None]
  - DEPRESSION [None]
  - DRY SKIN [None]
  - EYE PAIN [None]
  - FALL [None]
  - GASTRITIS [None]
  - HYPERLIPIDAEMIA [None]
  - HYPERTENSION [None]
  - INSOMNIA [None]
  - MYOPIA [None]
  - OESOPHAGITIS [None]
  - OSTEOMYELITIS [None]
  - OSTEONECROSIS [None]
  - PRESBYOPIA [None]
  - SKIN EXFOLIATION [None]
  - VITREOUS DEGENERATION [None]
  - VITREOUS DETACHMENT [None]
